FAERS Safety Report 5073231-8 (Version None)
Quarter: 2006Q3

REPORT INFORMATION
  Report Type: 
  Country: None (occurrence: None)
  Receive Date: 20060802
  Receipt Date: 20060724
  Transmission Date: 20061208
  Serious: Yes (Other)
  Sender: FDA-Public Use
  Company Number: 2006091903

PATIENT
  Age: 48 Year
  Sex: Female
  Weight: 64.4108 kg

DRUGS (5)
  1. LYRICA [Suspect]
     Indication: NEURALGIA
     Dosage: 75 MG (75 MG, 1 IN 1 D), ORAL
     Route: 048
     Dates: start: 20060101, end: 20060718
  2. WELLBUTRIN [Concomitant]
  3. PLAVIX [Concomitant]
  4. SPIRIVA [Concomitant]
  5. VYTORIN [Concomitant]

REACTIONS (8)
  - BLOOD THYROID STIMULATING HORMONE DECREASED [None]
  - DIPLOPIA [None]
  - HEADACHE [None]
  - IMPAIRED WORK ABILITY [None]
  - PHOTOPSIA [None]
  - READING DISORDER [None]
  - VISION BLURRED [None]
  - VISUAL FIELD DEFECT [None]
